FAERS Safety Report 12767874 (Version 1)
Quarter: 2016Q3

REPORT INFORMATION
  Report Type: Spontaneous
  Country: DK (occurrence: SE)
  Receive Date: 20160921
  Receipt Date: 20160921
  Transmission Date: 20161109
  Serious: Yes (Other)
  Sender: FDA-Public Use
  Company Number: SE-FRI-1000087590

PATIENT
  Sex: Male

DRUGS (2)
  1. CORSODYL [Interacting]
     Active Substance: CHLORHEXIDINE GLUCONATE
     Indication: PRODUCT USED FOR UNKNOWN INDICATION
     Route: 065
  2. ESCITALOPRAM [Suspect]
     Active Substance: ESCITALOPRAM OXALATE
     Indication: PRODUCT USED FOR UNKNOWN INDICATION
     Dosage: 20 MG
     Route: 065

REACTIONS (1)
  - Inhibitory drug interaction [Unknown]

NARRATIVE: CASE EVENT DATE: 201608
